FAERS Safety Report 25853537 (Version 1)
Quarter: 2025Q3

REPORT INFORMATION
  Report Type: Spontaneous
  Country: CN (occurrence: CN)
  Receive Date: 20250926
  Receipt Date: 20250926
  Transmission Date: 20251020
  Serious: Yes (Other)
  Sender: Kenvue
  Company Number: CN-KENVUE-20250912159

PATIENT

DRUGS (1)
  1. CHILDRENS MOTRIN [Suspect]
     Active Substance: IBUPROFEN
     Indication: Fracture pain
     Dosage: 10 MILLILITER, ONCE A DAY
     Route: 048
     Dates: start: 20250915, end: 20250915

REACTIONS (2)
  - Product administered to patient of inappropriate age [Unknown]
  - Lip swelling [Recovered/Resolved]

NARRATIVE: CASE EVENT DATE: 20250915
